FAERS Safety Report 14083542 (Version 1)
Quarter: 2017Q4

REPORT INFORMATION
  Report Type: Spontaneous
  Country: ES (occurrence: ES)
  Receive Date: 20171013
  Receipt Date: 20171013
  Transmission Date: 20180321
  Serious: Yes (Other)
  Sender: FDA-Public Use
  Company Number: ES-ENDO PHARMACEUTICALS INC-2017-005364

PATIENT
  Age: 15 Year
  Sex: Male

DRUGS (1)
  1. KETALAR [Suspect]
     Active Substance: KETAMINE HYDROCHLORIDE
     Indication: SUBSTANCE USE
     Dosage: 50 MG, DAILY
     Route: 045

REACTIONS (4)
  - Drug abuse [Recovered/Resolved]
  - Reduced bladder capacity [Not Recovered/Not Resolved]
  - Hydronephrosis [Not Recovered/Not Resolved]
  - Cystitis interstitial [Not Recovered/Not Resolved]
